FAERS Safety Report 14193995 (Version 1)
Quarter: 2017Q4

REPORT INFORMATION
  Report Type: Spontaneous
  Country: US (occurrence: US)
  Receive Date: 20171116
  Receipt Date: 20171116
  Transmission Date: 20180321
  Serious: No
  Sender: FDA-Public Use
  Company Number: US-ELI_LILLY_AND_COMPANY-US201710007701

PATIENT
  Sex: Female

DRUGS (5)
  1. CYMBALTA [Suspect]
     Active Substance: DULOXETINE HYDROCHLORIDE
     Indication: DEPRESSION
     Dosage: 30 MG, UNKNOWN
     Route: 065
  2. IMITREX [Concomitant]
     Active Substance: SUMATRIPTAN SUCCINATE
     Indication: MIGRAINE
     Dosage: UNK UNK, UNKNOWN
     Route: 065
  3. LYRICA [Concomitant]
     Active Substance: PREGABALIN
     Indication: DEPRESSION
     Dosage: UNK
  4. CYMBALTA [Suspect]
     Active Substance: DULOXETINE HYDROCHLORIDE
     Dosage: 60 MG, UNKNOWN
     Route: 065
  5. LYRICA [Concomitant]
     Active Substance: PREGABALIN
     Indication: FIBROMYALGIA

REACTIONS (6)
  - Nervousness [Unknown]
  - Depression [Unknown]
  - Vision blurred [Unknown]
  - Pain [Unknown]
  - Drug ineffective [Unknown]
  - Drug withdrawal syndrome [Unknown]
